FAERS Safety Report 6931394-0 (Version None)
Quarter: 2010Q3

REPORT INFORMATION
  Report Type: 
  Country: None (occurrence: None)
  Receive Date: 20100819
  Receipt Date: 20100812
  Transmission Date: 20110219
  Serious: Yes (Hospitalization)
  Sender: FDA-Public Use
  Company Number: GB-SANOFI-AVENTIS-2010SA006606

PATIENT
  Age: 60 Year
  Sex: Female

DRUGS (12)
  1. OXALIPLATIN [Suspect]
     Route: 041
     Dates: start: 20090821, end: 20090821
  2. OXALIPLATIN [Suspect]
     Route: 041
     Dates: start: 20091016, end: 20091016
  3. CAPECITABINE [Suspect]
     Route: 048
     Dates: start: 20090821
  4. CAPECITABINE [Suspect]
     Route: 048
     Dates: start: 20091016
  5. INVESTIGATIONAL DRUG [Concomitant]
     Dates: start: 20090822, end: 20090929
  6. INVESTIGATIONAL DRUG [Concomitant]
     Dates: start: 20091016, end: 20091019
  7. SIMVASTATIN [Concomitant]
  8. ASPIRIN [Concomitant]
  9. ADCAL [Concomitant]
  10. AMLODIPINE [Concomitant]
     Dates: end: 20091027
  11. AMOXICILLIN [Concomitant]
     Dates: start: 20090926, end: 20091001
  12. ALENDRONIC ACID [Concomitant]
     Route: 065

REACTIONS (4)
  - DYSPNOEA [None]
  - FEMORAL ARTERY EMBOLISM [None]
  - PERIPHERAL ISCHAEMIA [None]
  - UROSEPSIS [None]
